FAERS Safety Report 14024280 (Version 1)
Quarter: 2017Q3

REPORT INFORMATION
  Report Type: Spontaneous
  Country: US (occurrence: US)
  Receive Date: 20170928
  Receipt Date: 20170928
  Transmission Date: 20171128
  Serious: No
  Sender: FDA-Public Use
  Company Number: US-SA-2016SA238190

PATIENT
  Sex: Female

DRUGS (6)
  1. AMOXICLAV [Concomitant]
     Active Substance: AMOXICILLIN\CLAVULANIC ACID
  2. DULOXETINE. [Concomitant]
     Active Substance: DULOXETINE
  3. AUBAGIO [Suspect]
     Active Substance: TERIFLUNOMIDE
     Indication: MULTIPLE SCLEROSIS
     Route: 048
  4. BACLOFEN. [Concomitant]
     Active Substance: BACLOFEN
  5. COPAXONE [Concomitant]
     Active Substance: GLATIRAMER ACETATE
  6. ROPINIROLE. [Concomitant]
     Active Substance: ROPINIROLE

REACTIONS (3)
  - Vomiting [Not Recovered/Not Resolved]
  - Pyrexia [Not Recovered/Not Resolved]
  - Nausea [Not Recovered/Not Resolved]
